FAERS Safety Report 6402739-5 (Version None)
Quarter: 2009Q4

REPORT INFORMATION
  Report Type: 
  Country: None (occurrence: None)
  Receive Date: 20091013
  Receipt Date: 20090930
  Transmission Date: 20100525
  Serious: Yes (Other)
  Sender: FDA-Public Use
  Company Number: 2009AP001942

PATIENT
  Age: 76 Year
  Sex: Female

DRUGS (4)
  1. CARBIDOPA AND LEVODOPA [Suspect]
     Indication: PARKINSON'S DISEASE
     Dosage: 1 TAB; Q4H; PO
     Route: 048
     Dates: start: 20090101, end: 20090401
  2. ACETYLSALICYLIC ACID [Concomitant]
  3. CARBIDOPA AND LEVODOPA [Concomitant]
  4. ATENOLOL [Concomitant]

REACTIONS (11)
  - ARTHRALGIA [None]
  - BONE PAIN [None]
  - CONTUSION [None]
  - FATIGUE [None]
  - FEELING ABNORMAL [None]
  - GAIT DISTURBANCE [None]
  - MALAISE [None]
  - MUSCLE SPASMS [None]
  - MUSCLE TIGHTNESS [None]
  - PRODUCT SUBSTITUTION ISSUE [None]
  - REACTION TO DRUG EXCIPIENTS [None]
